FAERS Safety Report 8136777-1 (Version None)
Quarter: 2012Q1

REPORT INFORMATION
  Report Type: 
  Country: None (occurrence: None)
  Receive Date: 20120214
  Receipt Date: 20120210
  Transmission Date: 20120608
  Serious: Yes (Other)
  Sender: FDA-Public Use
  Company Number: US-PFIZER INC-2012021761

PATIENT
  Sex: Female

DRUGS (1)
  1. GEODON [Suspect]
     Dosage: UNK

REACTIONS (2)
  - DRUG INEFFECTIVE [None]
  - DRUG HYPERSENSITIVITY [None]
